FAERS Safety Report 19031626 (Version 1)
Quarter: 2021Q1

REPORT INFORMATION
  Report Type: Spontaneous
  Country: US (occurrence: US)
  Receive Date: 20210319
  Receipt Date: 20210319
  Transmission Date: 20210420
  Serious: Yes (Other)
  Sender: FDA-Public Use
  Company Number: None

PATIENT
  Age: 74 Year
  Sex: Female
  Weight: 60 kg

DRUGS (17)
  1. NAPROXEN. [Suspect]
     Active Substance: NAPROXEN
     Indication: PAIN
     Route: 048
  2. CHOLECALCIFEROL 50 IU CAPSULE [Concomitant]
  3. ACETAMINOPHEN/DIPHENHYDRAMINE 500/25MG TABLET [Concomitant]
  4. BLACK COHOSH [Concomitant]
     Active Substance: BLACK COHOSH
  5. ESTRADIOL 10 MG/ML IM SOLUTION [Concomitant]
  6. TRAZODONE [Concomitant]
     Active Substance: TRAZODONE HYDROCHLORIDE
  7. ATORVASTATIN 20 MG TABLET [Concomitant]
     Active Substance: ATORVASTATIN
  8. MELATONIN 10 MG CAPSULE [Concomitant]
  9. CETIRIZINE 10 MG TABLET [Concomitant]
  10. COQ10 100 MG TABLET [Concomitant]
  11. FERROUS SULFATE 325 MG TABLET [Concomitant]
  12. ACETAMINOPHEN/ASPIRIN/CAFFEINE [Suspect]
     Active Substance: ACETAMINOPHEN\ASPIRIN\CAFFEINE
     Indication: MIGRAINE
     Route: 048
  13. ESTRADIOL PATCH 0.025MG/24H [Concomitant]
  14. PRESERVISION AREDS 2 CAPSULE [Concomitant]
  15. CYANOCOBALAMIN 1000 MCG TABLET [Concomitant]
  16. LEVOTHYROXINE 125 MCG TABLET [Concomitant]
     Active Substance: LEVOTHYROXINE
  17. AMITRIPTYLINE 50 MG TABLET [Concomitant]

REACTIONS (7)
  - Syncope [None]
  - Faeces discoloured [None]
  - Haemoglobin decreased [None]
  - Dizziness [None]
  - Faeces hard [None]
  - Loss of consciousness [None]
  - Palpitations [None]

NARRATIVE: CASE EVENT DATE: 20210317
